FAERS Safety Report 7458048-9 (Version None)
Quarter: 2011Q2

REPORT INFORMATION
  Report Type: 
  Country: None (occurrence: None)
  Receive Date: 20110504
  Receipt Date: 20110428
  Transmission Date: 20111010
  Serious: Yes (Hospitalization)
  Sender: FDA-Public Use
  Company Number: GB-PFIZER INC-2011091665

PATIENT
  Sex: Female

DRUGS (3)
  1. VANCOMYCIN HCL [Suspect]
     Indication: SKIN ULCER
     Dosage: UNK
  2. TEICOPLANIN [Suspect]
     Indication: SKIN ULCER
     Dosage: UNK
  3. METRONIDAZOLE [Suspect]
     Indication: SKIN ULCER
     Dosage: UNK

REACTIONS (2)
  - DRUG INEFFECTIVE [None]
  - SEPTIC SHOCK [None]
